FAERS Safety Report 21450447 (Version 1)
Quarter: 2022Q4

REPORT INFORMATION
  Report Type: Spontaneous
  Country: US (occurrence: US)
  Receive Date: 20221013
  Receipt Date: 20221013
  Transmission Date: 20230113
  Serious: Yes (Hospitalization, Other)
  Sender: FDA-Public Use
  Company Number: US-009507513-1412USA005034

PATIENT
  Sex: Female
  Weight: 72.562 kg

DRUGS (5)
  1. FOSAMAX [Suspect]
     Active Substance: ALENDRONATE SODIUM
     Indication: Osteoporosis
     Dosage: 70 MG, QW
     Route: 048
     Dates: start: 200201, end: 20090415
  2. FOSAMAX [Suspect]
     Active Substance: ALENDRONATE SODIUM
     Dosage: 70 MG WEEKLY
     Route: 048
  3. ALENDRONATE SODIUM [Suspect]
     Active Substance: ALENDRONATE SODIUM
     Indication: Osteoporosis
     Dosage: 70 MG, QW
     Route: 048
     Dates: start: 20090415, end: 20101108
  4. CALCIUM;VITAMIN D NOS [Concomitant]
     Indication: Routine health maintenance
     Dosage: 630MG/ 1000 IU
     Route: 048
     Dates: start: 1995
  5. BENEFIBER [Suspect]
     Active Substance: STARCH, WHEAT

REACTIONS (11)
  - Road traffic accident [Unknown]
  - Diabetes mellitus [Unknown]
  - Femur fracture [Recovered/Resolved]
  - Femur fracture [Recovered/Resolved]
  - Denture wearer [Unknown]
  - Limb injury [Unknown]
  - Osteoarthritis [Unknown]
  - Fracture delayed union [Recovered/Resolved]
  - Device failure [Unknown]
  - Pain in extremity [Unknown]
  - Blood cholesterol increased [Unknown]

NARRATIVE: CASE EVENT DATE: 20050101
